FAERS Safety Report 15704196 (Version 4)
Quarter: 2019Q1

REPORT INFORMATION
  Report Type: Spontaneous
  Country: GB (occurrence: GB)
  Receive Date: 20181210
  Receipt Date: 20190326
  Transmission Date: 20190417
  Serious: Yes (Death, Hospitalization)
  Sender: FDA-Public Use
  Company Number: GB-PFIZER INC-2018503632

PATIENT
  Age: 71 Year
  Sex: Female

DRUGS (6)
  1. GENTAMICIN SULFATE. [Suspect]
     Active Substance: GENTAMICIN SULFATE
     Indication: HIP ARTHROPLASTY
     Dosage: 120 MG, UNK
     Route: 042
     Dates: start: 20180925, end: 20180925
  2. TEICOPLANIN [Suspect]
     Active Substance: TEICOPLANIN
     Indication: HIP ARTHROPLASTY
     Dosage: 400 MG, UNK
     Route: 042
     Dates: start: 20180925, end: 20180925
  3. TEICOPLANIN [Suspect]
     Active Substance: TEICOPLANIN
     Indication: ANTIBIOTIC PROPHYLAXIS
  4. FENTANYL. [Concomitant]
     Active Substance: FENTANYL
     Indication: HIP ARTHROPLASTY
     Dosage: 100 UG, UNK
     Route: 042
     Dates: start: 20180925, end: 20180925
  5. TRANEXAMIC ACID. [Suspect]
     Active Substance: TRANEXAMIC ACID
     Indication: HIP ARTHROPLASTY
     Dosage: UNK
     Dates: start: 20180925, end: 20180925
  6. PROPOFOL. [Concomitant]
     Active Substance: PROPOFOL
     Indication: HIP ARTHROPLASTY
     Dosage: 60 MG, UNK
     Route: 042
     Dates: start: 20180925, end: 20180925

REACTIONS (1)
  - Anaphylactic shock [Fatal]

NARRATIVE: CASE EVENT DATE: 20180925
